FAERS Safety Report 13059244 (Version 2)
Quarter: 2017Q4

REPORT INFORMATION
  Report Type: Spontaneous
  Country: US (occurrence: US)
  Receive Date: 20161223
  Receipt Date: 20171116
  Transmission Date: 20180320
  Serious: No
  Sender: FDA-Public Use
  Company Number: US-BAUSCH-BL-2016-021174

PATIENT
  Age: 45 Year
  Sex: Male

DRUGS (8)
  1. XENAZINE [Suspect]
     Active Substance: TETRABENAZINE
     Dosage: WEEK 2
     Route: 048
  2. XENAZINE [Suspect]
     Active Substance: TETRABENAZINE
     Dosage: 2 TABLETS TWICE DAILY BY THE FOURTH WEEK
     Route: 048
  3. XENAZINE [Suspect]
     Active Substance: TETRABENAZINE
     Dosage: WEEK 4
     Route: 048
  4. XENAZINE [Suspect]
     Active Substance: TETRABENAZINE
     Dosage: 1 TABLET IN THE MORNING AND 2 TABLETS IN THE EVENING FOR THE THIRD WEEK
  5. XENAZINE [Suspect]
     Active Substance: TETRABENAZINE
     Dosage: 25 MG IN THE MORNING AND 12.5 MG IN THE EVENING, WEEK 3
     Route: 048
  6. XENAZINE [Suspect]
     Active Substance: TETRABENAZINE
     Dosage: FIRST WEEK
     Route: 048
     Dates: start: 20170822
  7. XENAZINE [Suspect]
     Active Substance: TETRABENAZINE
     Indication: HUNTINGTON^S DISEASE
     Dosage: WEEK 1
     Route: 048
     Dates: start: 20160828
  8. XENAZINE [Suspect]
     Active Substance: TETRABENAZINE
     Dosage: SECOND WEEK
     Route: 048

REACTIONS (4)
  - Drug dose omission [Unknown]
  - Mental impairment [Unknown]
  - Hyperhidrosis [Unknown]
  - Confusional state [Unknown]

NARRATIVE: CASE EVENT DATE: 20160905
